FAERS Safety Report 4786290-4 (Version None)
Quarter: 2005Q3

REPORT INFORMATION
  Report Type: 
  Country: None (occurrence: None)
  Receive Date: 20050928
  Receipt Date: 20050722
  Transmission Date: 20060218
  Serious: No
  Sender: FDA-Public Use
  Company Number: 2005AP000607

PATIENT
  Age: 57 Year
  Sex: Female

DRUGS (5)
  1. CITALOPRAM HYDROBROMIDE [Suspect]
     Indication: ANXIETY
     Dosage: 10 MG; 1X; PO
     Route: 048
     Dates: start: 20050721, end: 20050721
  2. LOPRESSOR [Concomitant]
  3. PROGESTERON [Concomitant]
  4. HERBAL PREPARATION [Concomitant]
  5. MULTI-VITAMINS [Concomitant]

REACTIONS (4)
  - HEART RATE INCREASED [None]
  - PRURITUS [None]
  - RASH [None]
  - SWOLLEN TONGUE [None]
